FAERS Safety Report 5747125-6 (Version None)
Quarter: 2008Q2

REPORT INFORMATION
  Report Type: 
  Country: None (occurrence: None)
  Receive Date: 20080522
  Receipt Date: 20080515
  Transmission Date: 20081010
  Serious: Yes (Hospitalization, Other)
  Sender: FDA-Public Use
  Company Number: US-GILEAD-2008-0016471

PATIENT
  Sex: Female

DRUGS (1)
  1. LETAIRIS [Suspect]

REACTIONS (3)
  - BLOOD POTASSIUM DECREASED [None]
  - HEART RATE INCREASED [None]
  - SWELLING [None]
